FAERS Safety Report 9522096 (Version 1)
Quarter: 2013Q3

REPORT INFORMATION
  Report Type: Spontaneous
  Country: GB (occurrence: None)
  Receive Date: 20130911
  Receipt Date: 20130911
  Transmission Date: 20140515
  Serious: Yes (Hospitalization, Other)
  Sender: FDA-Public Use
  Company Number: GER/UKI/13/0034445

PATIENT
  Sex: Female

DRUGS (1)
  1. CIPROFLOXACIN [Suspect]
     Indication: WOUND INFECTION PSEUDOMONAS
     Dosage: 2 IN 1 D
     Route: 048

REACTIONS (4)
  - Treatment failure [None]
  - Pathogen resistance [None]
  - Skin ulcer [None]
  - Wound infection [None]
